FAERS Safety Report 9276654 (Version 2)
Quarter: 2013Q3

REPORT INFORMATION
  Report Type: Spontaneous
  Country: US (occurrence: US)
  Receive Date: 20130507
  Receipt Date: 20130912
  Transmission Date: 20140515
  Serious: Yes (Death, Hospitalization)
  Sender: FDA-Public Use
  Company Number: US-B.I. PHARMACEUTICALS,INC./RIDGEFIELD-2013-BI-11756BP

PATIENT
  Age: 71 Year
  Sex: Male

DRUGS (8)
  1. COMBIVENT [Suspect]
     Indication: PRODUCT USED FOR UNKNOWN INDICATION
     Dosage: 18 MCG / 103 MCG, 144 MCG/ 824 MCG
     Route: 055
     Dates: start: 201212
  2. GLYBURIDE [Concomitant]
  3. LISINOPRIL [Concomitant]
  4. RANTIDINE [Concomitant]
  5. METFORMIN [Concomitant]
  6. AMIODARONE [Concomitant]
  7. PREDNISON [Concomitant]
  8. ASPIRIN [Concomitant]

REACTIONS (1)
  - Lung cancer metastatic [Fatal]
